FAERS Safety Report 9638091 (Version 1)
Quarter: 2013Q4

REPORT INFORMATION
  Report Type: Spontaneous
  Country: US (occurrence: None)
  Receive Date: 20131021
  Receipt Date: 20131021
  Transmission Date: 20140711
  Serious: Yes (Other)
  Sender: FDA-Public Use
  Company Number: None

PATIENT
  Age: 33 Year
  Sex: Male
  Weight: 67.5 kg

DRUGS (2)
  1. METRONIDAZOLE [Suspect]
     Indication: ABDOMINAL INFECTION
     Route: 048
  2. LEVOFLOXACIN [Suspect]
     Indication: ABDOMINAL INFECTION
     Route: 048

REACTIONS (1)
  - Paraesthesia [None]
